FAERS Safety Report 9159460 (Version 1)
Quarter: 2013Q1

REPORT INFORMATION
  Report Type: Spontaneous
  Country: US (occurrence: US)
  Receive Date: 20130313
  Receipt Date: 20130313
  Transmission Date: 20140127
  Serious: Yes (Death)
  Sender: FDA-Public Use
  Company Number: PHEH2013US005841

PATIENT
  Sex: Male
  Weight: 83 kg

DRUGS (14)
  1. AFINITOR [Suspect]
     Indication: MALIGNANT NEOPLASM OF RENAL PELVIS
     Dosage: 10 MG, EVERY DAY
     Route: 048
     Dates: start: 20130206
  2. TYLENOL [Concomitant]
     Indication: PAIN
     Dosage: 1000 MG, Q6H
  3. ALLOPURINOL [Concomitant]
     Dosage: 150 MG, DAILY
     Route: 048
  4. ASPIRIN [Concomitant]
     Dosage: 81 MG, DAILY
     Route: 048
  5. CARVEDILOL [Concomitant]
     Dosage: 12.5 MG, BID
     Route: 048
  6. COLACE [Concomitant]
     Dosage: 250 MG, UNK
     Route: 048
  7. VASOTEC [Concomitant]
     Dosage: 10 MG, DAILY
     Route: 048
  8. PROSCAR [Concomitant]
     Dosage: 5 MG, DAILY
     Route: 048
  9. FUROSEMIDE [Concomitant]
     Dosage: 20 MG, BID
     Route: 048
  10. MULTIVITAMINS [Concomitant]
     Dosage: 1 DF, UNK
  11. NITROGLYCERIN [Concomitant]
     Dosage: 0.4 MG, UNK
  12. FISH OIL [Concomitant]
     Dosage: 1 G, DAILY
     Route: 048
  13. SIMVASTATIN [Concomitant]
     Dosage: 40 MG, DAILY
     Route: 048
  14. MYOFLEX [Concomitant]

REACTIONS (1)
  - Death [Fatal]
